FAERS Safety Report 12078843 (Version 1)
Quarter: 2016Q1

REPORT INFORMATION
  Report Type: Spontaneous
  Country: CA (occurrence: CA)
  Receive Date: 20160216
  Receipt Date: 20160216
  Transmission Date: 20160526
  Serious: Yes (Hospitalization)
  Sender: FDA-Public Use
  Company Number: CA-ROCHE-1709502

PATIENT
  Age: 58 Year
  Sex: Female

DRUGS (7)
  1. CIMZIA [Concomitant]
     Active Substance: CERTOLIZUMAB PEGOL
     Dosage: FOR 3 MONTHS
     Route: 058
  2. ORENCIA [Concomitant]
     Active Substance: ABATACEPT
     Dosage: 125 MG SINCE SPRING 2013 UNTIL 16/OCT/2013
     Route: 058
  3. RITUXAN [Suspect]
     Active Substance: RITUXIMAB
     Indication: RHEUMATOID ARTHRITIS
     Dosage: DOSE DATES: 14/MAR/2011 AND 28/MAR/2011 FOR 6 MONTHS. LAST DOSES: 19/NOV/2012 AND 03/DEC/2012
     Route: 042
     Dates: start: 20110314
  4. ORENCIA [Concomitant]
     Active Substance: ABATACEPT
     Dosage: 125 MG SINCE SPRING 2013 UNTIL 16/OCT/2013
     Route: 042
  5. ARAVA [Suspect]
     Active Substance: LEFLUNOMIDE
     Indication: PRODUCT USED FOR UNKNOWN INDICATION
     Dosage: 20 - 40 MG ONCE IN A DAY
     Route: 065
     Dates: start: 20120829, end: 201406
  6. METHOTREXATE SODIUM. [Suspect]
     Active Substance: METHOTREXATE SODIUM
     Indication: RHEUMATOID ARTHRITIS
     Route: 065
     Dates: end: 201208
  7. XELJANZ [Concomitant]
     Active Substance: TOFACITINIB CITRATE

REACTIONS (5)
  - Vomiting [Unknown]
  - Drug ineffective [Unknown]
  - Nausea [Unknown]
  - Pancreatitis [Unknown]
  - Drug intolerance [Unknown]
